FAERS Safety Report 5745492-0 (Version None)
Quarter: 2008Q2

REPORT INFORMATION
  Report Type: 
  Country: None (occurrence: None)
  Receive Date: 20080521
  Receipt Date: 20080509
  Transmission Date: 20081010
  Serious: Yes (Other)
  Sender: FDA-Public Use
  Company Number: US-ELI_LILLY_AND_COMPANY-US200805001897

PATIENT
  Age: 40 Year
  Sex: Male

DRUGS (2)
  1. STRATTERA [Suspect]
     Dosage: 80 MG, UNK
     Dates: start: 20080201, end: 20080101
  2. GEODON [Concomitant]

REACTIONS (1)
  - LIVER FUNCTION TEST ABNORMAL [None]
